FAERS Safety Report 12576750 (Version 2)
Quarter: 2016Q4

REPORT INFORMATION
  Report Type: Spontaneous
  Country: US (occurrence: US)
  Receive Date: 20160720
  Receipt Date: 20161019
  Transmission Date: 20170207
  Serious: No
  Sender: FDA-Public Use
  Company Number: US-OTSUKA-2016_010492

PATIENT
  Age: 20 Year
  Sex: Female

DRUGS (1)
  1. REXULTI [Suspect]
     Active Substance: BREXPIPRAZOLE
     Indication: DEPRESSION
     Dosage: UNK, QD (IN EVENING)
     Route: 065
     Dates: start: 20160505, end: 20160508

REACTIONS (17)
  - Neck pain [Unknown]
  - Loss of consciousness [Unknown]
  - Headache [Unknown]
  - Dehydration [Unknown]
  - Hypophagia [Unknown]
  - Abdominal pain [Unknown]
  - Hallucination [Unknown]
  - Formication [Unknown]
  - Abdominal discomfort [Unknown]
  - Anxiety [Unknown]
  - Dizziness [Unknown]
  - Cystitis [Unknown]
  - Visual impairment [Unknown]
  - Feeling abnormal [Unknown]
  - Agitation [Unknown]
  - Pain of skin [Unknown]
  - Dysphagia [Unknown]

NARRATIVE: CASE EVENT DATE: 20160509
